FAERS Safety Report 5503204-X (Version None)
Quarter: 2007Q4

REPORT INFORMATION
  Report Type: 
  Country: None (occurrence: None)
  Receive Date: 20071031
  Receipt Date: 20071025
  Transmission Date: 20080405
  Serious: Yes (Other)
  Sender: FDA-Public Use
  Company Number: US-ASTRAZENECA-2007UW24413

PATIENT
  Age: 82 Year
  Sex: Female
  Weight: 61.2 kg

DRUGS (1)
  1. ACCOLATE [Suspect]
     Dates: start: 20070901

REACTIONS (3)
  - ALOPECIA [None]
  - INTRAOCULAR PRESSURE INCREASED [None]
  - STOMACH DISCOMFORT [None]
